FAERS Safety Report 15646821 (Version 2)
Quarter: 2018Q4

REPORT INFORMATION
  Report Type: Spontaneous
  Country: US (occurrence: US)
  Receive Date: 20181122
  Receipt Date: 20181128
  Transmission Date: 20190205
  Serious: No
  Sender: FDA-Public Use
  Company Number: US-AMGEN-USASP2018161875

PATIENT
  Age: 54 Year
  Sex: Female

DRUGS (1)
  1. ENBREL [Suspect]
     Active Substance: ETANERCEPT
     Indication: PSORIATIC ARTHROPATHY
     Dosage: UNK
     Route: 065
     Dates: start: 2003

REACTIONS (5)
  - Arthropod bite [Recovered/Resolved]
  - Burning sensation [Not Recovered/Not Resolved]
  - Injection site recall reaction [Unknown]
  - Pain [Not Recovered/Not Resolved]
  - Injection site erythema [Unknown]

NARRATIVE: CASE EVENT DATE: 2018
